FAERS Safety Report 4641961-5 (Version None)
Quarter: 2005Q2

REPORT INFORMATION
  Report Type: 
  Country: None (occurrence: None)
  Receive Date: 20050421
  Receipt Date: 20050408
  Transmission Date: 20051028
  Serious: Yes (Other)
  Sender: FDA-Public Use
  Company Number: 2005056479

PATIENT
  Sex: Female
  Weight: 86.1834 kg

DRUGS (9)
  1. BEXTRA [Suspect]
     Indication: ARTHRITIS
     Dosage: 10 MG (10 MG, 1 IN 1 D), ORAL
     Route: 048
     Dates: start: 20040101
  2. WARFARIN SODIUM [Concomitant]
  3. AMIODARONE HCL [Concomitant]
  4. ISOSORBIDE MONONITRATE [Concomitant]
  5. QUINAPRIL HCL [Concomitant]
  6. RANITIDINE HYDROCHLORIDE [Concomitant]
  7. ATORVASTATIN CALCIUM [Concomitant]
  8. EZETIMIBE (EZETIMIBE) [Concomitant]
  9. MULTIVITAMINS (ASCORBIC ACID, ERGOCALCIFEROL, FOLIC ACID, NICOTINAMIDE [Concomitant]

REACTIONS (6)
  - CONDITION AGGRAVATED [None]
  - DIARRHOEA [None]
  - FALL [None]
  - POST PROCEDURAL COMPLICATION [None]
  - SPINAL COLUMN STENOSIS [None]
  - SPINAL FRACTURE [None]
